FAERS Safety Report 8554345-4 (Version None)
Quarter: 2012Q3

REPORT INFORMATION
  Report Type: 
  Country: None (occurrence: None)
  Receive Date: 20120731
  Receipt Date: 20120723
  Transmission Date: 20120928
  Serious: Yes (Disabling, Other)
  Sender: FDA-Public Use
  Company Number: US-009507513-1207USA009796

PATIENT

DRUGS (20)
  1. ZOCOR [Suspect]
     Route: 048
  2. ZANTAC [Suspect]
  3. METHOCARBAMOL [Suspect]
     Route: 048
  4. ISOSORBIDE MONONITRATE [Suspect]
  5. NITROSTAT [Suspect]
  6. DILANTIN [Suspect]
     Route: 048
  7. REMERON [Suspect]
     Route: 048
  8. POTASSIUM CHLORIDE [Suspect]
  9. DEPAKOTE [Suspect]
     Route: 048
  10. LANTUS [Suspect]
     Dosage: 90 DF, QPM
  11. ATENOLOL [Suspect]
     Route: 048
  12. ATIVAN [Suspect]
     Route: 048
  13. FUROSEMIDE [Suspect]
     Route: 048
  14. NORVASC [Suspect]
     Route: 048
  15. GENERLAC [Suspect]
  16. TYLENOL W/ CODEINE NO. 3 [Suspect]
  17. LOMOTIL [Suspect]
     Route: 048
  18. HUMULIN R [Suspect]
  19. ASPIRIN [Suspect]
  20. LANTUS [Suspect]
     Dosage: 80 IU, QAM

REACTIONS (4)
  - CHRONIC OBSTRUCTIVE PULMONARY DISEASE [None]
  - BEDRIDDEN [None]
  - EMPHYSEMA [None]
  - AMNESIA [None]
